FAERS Safety Report 5644222-0 (Version None)
Quarter: 2008Q1

REPORT INFORMATION
  Report Type: 
  Country: None (occurrence: None)
  Receive Date: 20080227
  Receipt Date: 20080227
  Transmission Date: 20080703
  Serious: Yes (Hospitalization)
  Sender: FDA-Public Use
  Company Number: None

PATIENT
  Age: 88 Year
  Sex: Male
  Weight: 76 kg

DRUGS (1)
  1. LISINOPRIL [Suspect]
     Indication: ATRIAL FIBRILLATION
     Dosage: 20MG EVERY DAY PO
     Route: 048
     Dates: start: 20071211, end: 20080114

REACTIONS (1)
  - RENAL FAILURE ACUTE [None]
